FAERS Safety Report 4746860-6 (Version None)
Quarter: 2005Q3

REPORT INFORMATION
  Report Type: 
  Country: None (occurrence: None)
  Receive Date: 20050817
  Receipt Date: 20050809
  Transmission Date: 20060218
  Serious: Yes (Other)
  Sender: FDA-Public Use
  Company Number: 200516193US

PATIENT
  Sex: Male

DRUGS (2)
  1. LANTUS [Suspect]
     Indication: DIABETES MELLITUS
     Dosage: DOSE: UNKNOWN
     Route: 051
     Dates: start: 20040101
  2. HUMULIN 70/30 [Concomitant]
     Dosage: DOSE: UNKNOWN
     Dates: end: 20040101

REACTIONS (1)
  - RENAL IMPAIRMENT [None]
